FAERS Safety Report 4376995-1 (Version None)
Quarter: 2004Q2

REPORT INFORMATION
  Report Type: 
  Country: None (occurrence: None)
  Receive Date: 20040608
  Receipt Date: 20040526
  Transmission Date: 20050107
  Serious: Yes (Other)
  Sender: FDA-Public Use
  Company Number: CO-JNJFOC-20040506761

PATIENT
  Age: 16 Year
  Sex: Male

DRUGS (4)
  1. REMICADE (INFLIXIMAB, RECOMBINANT) LYOPHILIZED POWDER [Suspect]
     Indication: JUVENILE ARTHRITIS
     Dosage: 200 MG, INTRAVENOUS
     Route: 042
     Dates: start: 20021114
  2. REMICADE (INFLIXIMAB, RECOMBINANT) LYOPHILIZED POWDER [Suspect]
     Indication: JUVENILE ARTHRITIS
     Dosage: 200 MG, INTRAVENOUS
     Route: 042
     Dates: start: 20040115
  3. METHOTREXATE [Concomitant]
  4. ACETAMINOPHEN [Concomitant]

REACTIONS (2)
  - HEPATIC STEATOSIS [None]
  - HEPATOTOXICITY [None]
